FAERS Safety Report 20659295 (Version 1)
Quarter: 2022Q1

REPORT INFORMATION
  Report Type: Spontaneous
  Country: US (occurrence: None)
  Receive Date: 20220330
  Receipt Date: 20220330
  Transmission Date: 20220423
  Serious: No
  Sender: FDA-Public Use
  Company Number: None

PATIENT
  Age: 73 Year
  Sex: Female
  Weight: 71.3 kg

DRUGS (2)
  1. DEVICE [Suspect]
     Active Substance: DEVICE
     Indication: Rectal cancer
     Dosage: OTHER FREQUENCY : OVER 48 HOURS;?
     Route: 042
     Dates: start: 20220314, end: 20220315
  2. FLUOROURACIL [Suspect]
     Active Substance: FLUOROURACIL

REACTIONS (3)
  - Incorrect drug administration rate [None]
  - Malaise [None]
  - Tongue ulceration [None]

NARRATIVE: CASE EVENT DATE: 20220314
